FAERS Safety Report 6795441-1 (Version None)
Quarter: 2010Q2

REPORT INFORMATION
  Report Type: 
  Country: None (occurrence: None)
  Receive Date: 20100625
  Receipt Date: 20100615
  Transmission Date: 20101027
  Serious: Yes (Life-Threatening, Hospitalization)
  Sender: FDA-Public Use
  Company Number: JP-JNJFOC-20100300977

PATIENT
  Sex: Female
  Weight: 30 kg

DRUGS (32)
  1. REMICADE [Suspect]
     Indication: CROHN'S DISEASE
     Route: 042
  2. REMICADE [Suspect]
     Dosage: 1 INFUSION
     Route: 042
  3. REMICADE [Suspect]
     Route: 042
  4. REMICADE [Suspect]
     Route: 042
  5. IMURAN [Suspect]
     Indication: CROHN'S DISEASE
     Route: 048
  6. IMURAN [Suspect]
     Route: 048
  7. IMURAN [Suspect]
     Route: 048
  8. PREDNISOLONE [Suspect]
     Indication: CROHN'S DISEASE
     Route: 048
  9. PREDNISOLONE [Suspect]
     Route: 048
  10. PREDNISOLONE [Suspect]
     Route: 048
  11. PREDNISOLONE [Suspect]
     Route: 048
  12. PREDNISOLONE [Suspect]
     Route: 048
  13. PREDNISOLONE [Suspect]
     Route: 048
  14. PREDNISOLONE [Suspect]
     Route: 048
  15. PREDNISOLONE [Suspect]
     Route: 048
  16. PREDNISOLONE [Suspect]
     Route: 048
  17. 5-ASA [Concomitant]
     Indication: CROHN'S DISEASE
  18. PROTON PUMP INHIBITOR [Concomitant]
  19. ELENTAL [Concomitant]
  20. SOLITAX-H [Concomitant]
  21. SOLITA- NO 3 [Concomitant]
  22. AMINO ACID INJ [Concomitant]
  23. INTRALIPID 10% [Concomitant]
  24. NOVORAPID [Concomitant]
  25. THYRADIN [Concomitant]
  26. ASPARTATE POTASSIUM [Concomitant]
  27. BIO THREE [Concomitant]
     Route: 048
  28. BLOSTAR M [Concomitant]
     Route: 048
  29. ALFAROL [Concomitant]
     Route: 048
  30. COLONEL [Concomitant]
     Route: 048
  31. PENLES [Concomitant]
  32. URSO 250 [Concomitant]
     Route: 048

REACTIONS (8)
  - BACTERAEMIA [None]
  - CONVULSION [None]
  - DEVICE RELATED INFECTION [None]
  - ECZEMA [None]
  - ENCEPHALOPATHY [None]
  - HEPATIC FUNCTION ABNORMAL [None]
  - HYPOKALAEMIA [None]
  - INFLUENZA [None]
